FAERS Safety Report 16910874 (Version 1)
Quarter: 2019Q4

REPORT INFORMATION
  Report Type: Spontaneous
  Country: US (occurrence: US)
  Receive Date: 20190820
  Receipt Date: 20190820
  Transmission Date: 20200122
  Serious: Yes (Hospitalization)
  Sender: FDA-Public Use
  Company Number: None

PATIENT
  Age: 79 Year
  Sex: Male
  Weight: 102 kg

DRUGS (2)
  1. SULFAMETHOXAZOLE/TRIMETHOPRIM [Suspect]
     Active Substance: SULFAMETHOXAZOLE\TRIMETHOPRIM
     Indication: CELLULITIS
     Dosage: ?          OTHER DOSE:800/160 MG;?
     Route: 048
     Dates: start: 20190807, end: 20190814
  2. SULFAMETHOXAZOLE/TRIMETHOPRIM [Suspect]
     Active Substance: SULFAMETHOXAZOLE\TRIMETHOPRIM
     Indication: ABSCESS JAW
     Dosage: ?          OTHER DOSE:800/160 MG;?
     Route: 048
     Dates: start: 20190807, end: 20190814

REACTIONS (2)
  - Hepatic enzyme increased [None]
  - Blood bilirubin increased [None]

NARRATIVE: CASE EVENT DATE: 20190814
